FAERS Safety Report 6279267-3 (Version None)
Quarter: 2009Q3

REPORT INFORMATION
  Report Type: 
  Country: None (occurrence: None)
  Receive Date: 20090721
  Receipt Date: 20090707
  Transmission Date: 20100115
  Serious: Yes (Hospitalization)
  Sender: FDA-Public Use
  Company Number: TRP_06298_2009

PATIENT
  Sex: Male
  Weight: 149.687 kg

DRUGS (18)
  1. INFERGEN [Suspect]
     Indication: HEPATITIS C
     Dosage: (15 ?G QD SUBCUTANEOUS)
     Route: 058
     Dates: start: 20090516, end: 20090601
  2. INFERGEN [Suspect]
     Indication: HEPATITIS C
     Dosage: (15 ?G QD SUBCUTANEOUS)
     Route: 058
     Dates: start: 20090619, end: 20090626
  3. RIBAVIRIN [Suspect]
     Indication: HEPATITIS C
     Dosage: (200 MG BID ORAL)
     Route: 048
     Dates: start: 20090516, end: 20090601
  4. RIBAVIRIN [Suspect]
     Indication: HEPATITIS C
     Dosage: (200 MG BID ORAL)
     Route: 048
     Dates: start: 20090619, end: 20090626
  5. ALLOPURINOL [Concomitant]
  6. ACTOS [Concomitant]
  7. NORVASC [Concomitant]
  8. LIPITOR [Concomitant]
  9. LEXAPRO [Concomitant]
  10. COLCHICINE [Concomitant]
  11. DIOVAN [Concomitant]
  12. LISINOPRIL [Concomitant]
  13. CARISOPRODOL [Concomitant]
  14. TRAMADOL [Concomitant]
  15. TEMAZEPAM [Concomitant]
  16. NOVOLIN R [Concomitant]
  17. NOVOLIN N [Concomitant]
  18. FIORICET [Concomitant]

REACTIONS (7)
  - BLOOD ELECTROLYTES ABNORMAL [None]
  - DIZZINESS [None]
  - EYE DISCHARGE [None]
  - INSOMNIA [None]
  - LISTLESS [None]
  - PANCREATITIS CHRONIC [None]
  - VISION BLURRED [None]
